FAERS Safety Report 7278974-3 (Version None)
Quarter: 2011Q1

REPORT INFORMATION
  Report Type: 
  Country: None (occurrence: None)
  Receive Date: 20110207
  Receipt Date: 20110126
  Transmission Date: 20110831
  Serious: Yes (Hospitalization)
  Sender: FDA-Public Use
  Company Number: PHHY2011US06926

PATIENT
  Sex: Male

DRUGS (10)
  1. AFINITOR [Suspect]
     Indication: RENAL CELL CARCINOMA
     Dosage: 10 MG, QD
     Route: 048
     Dates: start: 20100914, end: 20110113
  2. COZAAR [Concomitant]
  3. FOLIC ACID [Concomitant]
  4. CENTRUM SILVER [Concomitant]
  5. LANTUS [Concomitant]
  6. FERROUS SULFATE TAB [Concomitant]
  7. PLETAL [Concomitant]
  8. LOSARTAN POTASSIUM [Concomitant]
  9. POTASSIUM [Concomitant]
  10. LASIX [Concomitant]

REACTIONS (9)
  - FLUID RETENTION [None]
  - PLEURAL EFFUSION [None]
  - COUGH [None]
  - ORTHOPNOEA [None]
  - DYSPNOEA [None]
  - CACHEXIA [None]
  - PULMONARY OEDEMA [None]
  - EJECTION FRACTION DECREASED [None]
  - CARDIAC FAILURE CONGESTIVE [None]
